FAERS Safety Report 6705986-8 (Version None)
Quarter: 2010Q2

REPORT INFORMATION
  Report Type: 
  Country: None (occurrence: None)
  Receive Date: 20100429
  Receipt Date: 20100415
  Transmission Date: 20101027
  Serious: Yes (Other)
  Sender: FDA-Public Use
  Company Number: US-1181574

PATIENT
  Age: 61 Year
  Sex: Female
  Weight: 45.3597 kg

DRUGS (2)
  1. OMNIPRED [Suspect]
     Indication: MACULOPATHY
     Dosage: (2 GTT QID OD OPHTHALMIC), (2 GTT Q1H OU OPHTHALMIC)
     Route: 047
     Dates: start: 20100223, end: 20100405
  2. OMNIPRED [Suspect]
     Indication: MACULOPATHY
     Dosage: (2 GTT QID OD OPHTHALMIC), (2 GTT Q1H OU OPHTHALMIC)
     Route: 047
     Dates: start: 20100405, end: 20100414

REACTIONS (10)
  - ASTHENIA [None]
  - CONFUSIONAL STATE [None]
  - DIZZINESS [None]
  - DYSGEUSIA [None]
  - METAMORPHOPSIA [None]
  - MIGRAINE [None]
  - PHOTOPHOBIA [None]
  - SPEECH DISORDER [None]
  - TRANSIENT ISCHAEMIC ATTACK [None]
  - VISUAL IMPAIRMENT [None]
